FAERS Safety Report 10214846 (Version 2)
Quarter: 2014Q2

REPORT INFORMATION
  Report Type: Spontaneous
  Country: US (occurrence: US)
  Receive Date: 20140603
  Receipt Date: 20140611
  Transmission Date: 20141212
  Serious: Yes (Hospitalization)
  Sender: FDA-Public Use
  Company Number: US-JNJFOC-20140519927

PATIENT
  Age: 69 Year
  Sex: Male
  Weight: 91.8 kg

DRUGS (2)
  1. OLYSIO [Suspect]
     Indication: HEPATITIS C
     Route: 048
     Dates: start: 201403, end: 20140528
  2. SOFOSBUVIR [Suspect]
     Indication: HEPATITIS C
     Route: 048
     Dates: start: 201403, end: 20140528

REACTIONS (12)
  - Hepatic encephalopathy [Unknown]
  - Hyperammonaemia [Recovering/Resolving]
  - Confusional state [Recovering/Resolving]
  - Fatigue [Unknown]
  - Gait disturbance [Unknown]
  - Memory impairment [Unknown]
  - Speech disorder [Unknown]
  - Asthenia [Unknown]
  - Hypersomnia [Unknown]
  - Pyrexia [Unknown]
  - Night sweats [Unknown]
  - Off label use [Unknown]
